FAERS Safety Report 10554310 (Version 2)
Quarter: 2014Q4

REPORT INFORMATION
  Report Type: Spontaneous
  Country: US (occurrence: US)
  Receive Date: 20141030
  Receipt Date: 20141030
  Transmission Date: 20150529
  Serious: Yes (Hospitalization, Disabling, Other)
  Sender: FDA-Public Use
  Company Number: US-GLAXOSMITHKLINE-A0873074A

PATIENT
  Sex: Male

DRUGS (1)
  1. AVANDIA [Suspect]
     Active Substance: ROSIGLITAZONE MALEATE
     Indication: TYPE 2 DIABETES MELLITUS
     Dosage: UNK, QD
     Route: 048
     Dates: start: 200001, end: 200312

REACTIONS (6)
  - Pericardial rub [Unknown]
  - Pericarditis [Unknown]
  - Myocardial infarction [Not Recovered/Not Resolved]
  - Coronary artery disease [Unknown]
  - Postinfarction angina [Unknown]
  - Cardiovascular disorder [Unknown]
